FAERS Safety Report 7036267-3 (Version None)
Quarter: 2010Q4

REPORT INFORMATION
  Report Type: 
  Country: None (occurrence: None)
  Receive Date: 20101008
  Receipt Date: 20100927
  Transmission Date: 20110411
  Serious: Yes (Life-Threatening, Hospitalization)
  Sender: FDA-Public Use
  Company Number: ES-ABBOTT-08P-144-0434102-00

PATIENT
  Sex: Male

DRUGS (5)
  1. RITONAVIR SOFT GELATIN CAPSULES [Suspect]
     Indication: HIV INFECTION
     Dates: start: 20070728, end: 20070907
  2. TIPRANAVIR [Suspect]
     Indication: HIV INFECTION
     Route: 048
     Dates: start: 20070728, end: 20070907
  3. FTC [Concomitant]
     Indication: HIV INFECTION
     Route: 048
     Dates: start: 20070728, end: 20070907
  4. TENOFOVIR DISOPROXIL FUMARATE [Concomitant]
     Indication: HIV INFECTION
     Route: 048
     Dates: start: 20070728, end: 20070907
  5. VIDEX [Concomitant]
     Indication: HIV INFECTION
     Route: 048
     Dates: start: 20070728, end: 20070907

REACTIONS (4)
  - BLOOD ALBUMIN DECREASED [None]
  - HEPATOSPLENOMEGALY [None]
  - HYPERBILIRUBINAEMIA [None]
  - PROTHROMBIN LEVEL DECREASED [None]
